FAERS Safety Report 7108459-6 (Version None)
Quarter: 2010Q4

REPORT INFORMATION
  Report Type: 
  Country: None (occurrence: None)
  Receive Date: 20101117
  Receipt Date: 20101108
  Transmission Date: 20110411
  Serious: Yes (Hospitalization)
  Sender: FDA-Public Use
  Company Number: B0684673A

PATIENT
  Sex: Female

DRUGS (10)
  1. LANOXIN [Suspect]
     Indication: ARRHYTHMIA
     Dosage: 1TAB PER DAY
     Route: 048
     Dates: start: 20080620, end: 20101011
  2. MONOKET [Concomitant]
     Indication: PRODUCT USED FOR UNKNOWN INDICATION
     Dosage: 2UNIT PER DAY
     Route: 065
  3. CRESTOR [Concomitant]
     Indication: PRODUCT USED FOR UNKNOWN INDICATION
     Dosage: 1UNIT PER DAY
     Route: 065
  4. LASIX [Concomitant]
     Indication: PRODUCT USED FOR UNKNOWN INDICATION
     Dosage: 125MG PER DAY
     Route: 065
  5. CORDARONE [Concomitant]
     Indication: PRODUCT USED FOR UNKNOWN INDICATION
     Dosage: 1UNIT PER DAY
     Route: 065
  6. PANTORC [Concomitant]
     Indication: PRODUCT USED FOR UNKNOWN INDICATION
     Dosage: 1UNIT PER DAY
     Route: 065
  7. ZYLORIC [Concomitant]
     Indication: PRODUCT USED FOR UNKNOWN INDICATION
     Dosage: 1UNIT PER DAY
     Route: 065
  8. SPIRIVA [Concomitant]
     Indication: PRODUCT USED FOR UNKNOWN INDICATION
     Dosage: 1UNIT PER DAY
     Route: 065
  9. SERETIDE [Concomitant]
     Indication: PRODUCT USED FOR UNKNOWN INDICATION
     Dosage: 2UNIT PER DAY
     Route: 065
  10. TRAZODONE HCL [Concomitant]
     Indication: PRODUCT USED FOR UNKNOWN INDICATION
     Dosage: 1UNIT PER DAY
     Route: 065

REACTIONS (3)
  - HYPOKALAEMIA [None]
  - TORSADE DE POINTES [None]
  - VENTRICULAR TACHYCARDIA [None]
